FAERS Safety Report 20736337 (Version 1)
Quarter: 2022Q2

REPORT INFORMATION
  Report Type: Spontaneous
  Country: GB (occurrence: GB)
  Receive Date: 20220421
  Receipt Date: 20220421
  Transmission Date: 20220721
  Serious: Yes (Other)
  Sender: FDA-Public Use
  Company Number: None

PATIENT
  Age: 71 Year
  Sex: Male
  Weight: 56 kg

DRUGS (23)
  1. BUPRENORPHINE [Suspect]
     Active Substance: BUPRENORPHINE
     Indication: Product used for unknown indication
     Dosage: 5 MICROGRAM, QH
     Dates: start: 20220413
  2. ATENOLOL [Concomitant]
     Active Substance: ATENOLOL
     Dosage: 1 DOSAGE FORM, AM,  TAKE IN THE MORNING
     Dates: start: 20200129
  3. ATORVASTATIN [Concomitant]
     Active Substance: ATORVASTATIN
     Dosage: 1 DOSAGE FORM, QD, TAKE AT NIGHT
     Dates: start: 20200129
  4. CAPSAICIN [Concomitant]
     Active Substance: CAPSAICIN
     Dosage: 1 DOSAGE FORM, APPLY 3-4 TIMES
     Dates: start: 20220404, end: 20220413
  5. CHLORPROMAZINE [Concomitant]
     Active Substance: CHLORPROMAZINE
     Dosage: 1 DOSAGE FORM, QD, AT NIGHT
     Dates: start: 20200129
  6. COCODAMOL [Concomitant]
     Active Substance: ACETAMINOPHEN\CODEINE PHOSPHATE
     Dosage: 1 DOSAGE FORM, QID
     Dates: start: 20220310
  7. DIAZEPAM [Concomitant]
     Active Substance: DIAZEPAM
     Indication: Magnetic resonance imaging
     Dosage: 1 DOSAGE FORM, PRN, TAKE AS NEEDED BEFORE MRI
     Dates: start: 20200129
  8. ESCITALOPRAM [Concomitant]
     Active Substance: ESCITALOPRAM OXALATE
     Dosage: 1 DOSAGE FORM, QD, TAKE IN THE MORNING
     Dates: start: 20200129
  9. IBUPROFEN [Concomitant]
     Active Substance: IBUPROFEN
     Dosage: UNK, QD, APPLY 3-4 TIMES
     Dates: start: 20220316
  10. HYLO TEAR [Concomitant]
     Dosage: 1 DOSAGE FORM, QID, DROP INTO BOTH EYES
     Dates: start: 20200129
  11. IBUPROFEN [Concomitant]
     Active Substance: IBUPROFEN
     Dosage: 1 DOSAGE FORM, TID
     Dates: start: 20220404, end: 20220413
  12. KEMADRIN [Concomitant]
     Active Substance: PROCYCLIDINE HYDROCHLORIDE
     Dosage: 1 DOSAGE FORM, TID, TAKE IN THE MORNING, LUNCHTIME AND TEATIME
     Dates: start: 20200129
  13. MOMETASONE [Concomitant]
     Active Substance: MOMETASONE
     Dosage: 2 DOSAGE FORM, QD
     Dates: start: 20200129, end: 20220413
  14. MORPHINE SULFATE [Concomitant]
     Active Substance: MORPHINE SULFATE
     Dosage: 5 MILLIGRAM, QID
     Dates: start: 20220404, end: 20220413
  15. NAPROXEN [Concomitant]
     Active Substance: NAPROXEN
     Dosage: 1 DOSAGE FORM, BID
     Dates: start: 20220317
  16. Oilatum [Concomitant]
     Dosage: UNK, PRN, AS NECESSARY
     Dates: start: 20200129, end: 20220413
  17. OMEPRAZOLE [Concomitant]
     Active Substance: OMEPRAZOLE
     Dosage: 1 DOSAGE FORM, QD
     Dates: start: 20200129
  18. ACETAMINOPHEN [Concomitant]
     Active Substance: ACETAMINOPHEN
     Dosage: UNK, TAKE 1 OR 2 EVERY 4 TO 6 HOURS WHEN REQUIRED
     Dates: start: 20200129, end: 20220404
  19. RAMIPRIL [Concomitant]
     Active Substance: RAMIPRIL
     Dosage: 1 DOSAGE FORM, QD, TAKE IN THE MORNING
     Dates: start: 20200129
  20. SENNA [Concomitant]
     Active Substance: SENNA LEAF\SENNOSIDES\SENNOSIDES A AND B
     Dosage: 1 DOSAGE FORM, QD, TAKE AT NIGHT
     Dates: start: 20220404
  21. SEVODYNE [Concomitant]
     Dosage: 1 DOSAGE FORM, QW, CHANGE EVERY 7 DAYS
     Dates: start: 20220209, end: 20220309
  22. TEGRETOL [Concomitant]
     Active Substance: CARBAMAZEPINE
     Dosage: 1 DOSAGE FORM, TID, TAKE IN THE MORNING, LUNCHTIME AND TEATIME
     Dates: start: 20200129
  23. TRAZODONE [Concomitant]
     Active Substance: TRAZODONE HYDROCHLORIDE
     Dosage: 1 DOSAGE FORM, QD, TAKE AT NIGHT
     Dates: start: 20200129

REACTIONS (1)
  - Confusional state [Recovered/Resolved]

NARRATIVE: CASE EVENT DATE: 20220413
